FAERS Safety Report 9419505 (Version 9)
Quarter: 2015Q2

REPORT INFORMATION
  Report Type: Spontaneous
  Country: US (occurrence: US)
  Receive Date: 20130725
  Receipt Date: 20150402
  Transmission Date: 20150821
  Serious: Yes (Hospitalization, Other)
  Sender: FDA-Public Use
  Company Number: US-PFIZER INC-2013213395

PATIENT
  Age: 59 Year
  Sex: Female

DRUGS (10)
  1. PREMARIN [Suspect]
     Active Substance: ESTROGENS, CONJUGATED
     Dosage: 0.9 MG, UNK
     Dates: start: 20100903, end: 20120210
  2. PREMARIN [Suspect]
     Active Substance: ESTROGENS, CONJUGATED
     Indication: BONE LOSS
     Dosage: 0.625 MG - 0.9MG, 1X/DAY
     Dates: start: 20070827
  3. GLIMEPIRIDE. [Concomitant]
     Active Substance: GLIMEPIRIDE
     Dosage: UNK
     Dates: start: 2007
  4. ESTRADIOL. [Concomitant]
     Active Substance: ESTRADIOL
     Indication: BONE LOSS
     Dosage: 0.5 MG-1MG, UNK
     Dates: start: 20070827, end: 20120210
  5. RANITIDINE [Concomitant]
     Active Substance: RANITIDINE\RANITIDINE HYDROCHLORIDE
     Dosage: UNK
     Dates: start: 2007
  6. ESTROGEN [Concomitant]
     Active Substance: ESTRONE\SUS SCROFA OVARY
     Indication: BONE LOSS
     Dosage: UNK
     Dates: start: 20090728, end: 20100105
  7. PREMARIN [Suspect]
     Active Substance: ESTROGENS, CONJUGATED
     Indication: OSTEOARTHRITIS
     Dosage: 0.625 UNK, UNK
     Dates: start: 20070927, end: 20080927
  8. PREMARIN [Suspect]
     Active Substance: ESTROGENS, CONJUGATED
     Indication: VULVOVAGINAL DRYNESS
     Dosage: 0.625 MG, UNK
     Dates: start: 20061216
  9. ESTRACE [Concomitant]
     Active Substance: ESTRADIOL
     Indication: HORMONE REPLACEMENT THERAPY
     Dosage: 0.5 MG, UNK
     Dates: start: 20111118, end: 20120210
  10. ESTRADIOL. [Concomitant]
     Active Substance: ESTRADIOL
     Indication: OSTEOARTHRITIS

REACTIONS (10)
  - Pain [Not Recovered/Not Resolved]
  - Retinal disorder [Not Recovered/Not Resolved]
  - Back pain [Unknown]
  - Eye pain [Unknown]
  - Abdominal distension [Unknown]
  - Chronic obstructive pulmonary disease [Not Recovered/Not Resolved]
  - Vaginal haemorrhage [Unknown]
  - Arthralgia [Unknown]
  - Vaginal discharge [Unknown]
  - Uterine disorder [Not Recovered/Not Resolved]

NARRATIVE: CASE EVENT DATE: 2010
